FAERS Safety Report 11214785 (Version 1)
Quarter: 2015Q2

REPORT INFORMATION
  Report Type: Spontaneous
  Country: US (occurrence: None)
  Receive Date: 20150608
  Receipt Date: 20150608
  Transmission Date: 20150821
  Serious: No
  Sender: FDA-Public Use
  Company Number: 2015TUS000405

PATIENT
  Age: 61 Year
  Sex: Female

DRUGS (14)
  1. CLONAZE (CLONAZEPAM) [Concomitant]
  2. BRINTELLIX [Suspect]
     Active Substance: VORTIOXETINE HYDROBROMIDE
     Indication: PRODUCT USED FOR UNKNOWN INDICATION
  3. LEVOTHYROXINE [Concomitant]
     Active Substance: LEVOTHYROXINE
  4. TRAZODONE [Concomitant]
     Active Substance: TRAZODONE HYDROCHLORIDE
  5. DILAUDID [Concomitant]
     Active Substance: HYDROMORPHONE HYDROCHLORIDE
  6. LIDOCAINE. [Concomitant]
     Active Substance: LIDOCAINE
  7. FUROSEMIDE. [Concomitant]
     Active Substance: FUROSEMIDE
  8. ATORVASTATIN [Concomitant]
     Active Substance: ATORVASTATIN
  9. OXYCONTIN [Concomitant]
     Active Substance: OXYCODONE HYDROCHLORIDE
  10. FLUOXETINE [Concomitant]
     Active Substance: FLUOXETINE\FLUOXETINE HYDROCHLORIDE
  11. GABAPENTIN. [Concomitant]
     Active Substance: GABAPENTIN
  12. NITROGLYCERIN (GLYCERYL TRINITRATE) [Concomitant]
     Active Substance: NITROGLYCERIN
  13. RELPAX [Concomitant]
     Active Substance: ELETRIPTAN HYDROBROMIDE
  14. VALACYCLOVIR (VALACICLOVIR HYDROCHLORIDE) [Concomitant]

REACTIONS (1)
  - Myalgia [None]
